FAERS Safety Report 15842987 (Version 7)
Quarter: 2020Q4

REPORT INFORMATION
  Report Type: Spontaneous
  Country: HU (occurrence: HU)
  Receive Date: 20190118
  Receipt Date: 20201125
  Transmission Date: 20210113
  Serious: Yes (Other)
  Sender: FDA-Public Use
  Company Number: PHHY2019HU006724

PATIENT
  Age: 43 Year
  Sex: Male

DRUGS (14)
  1. OCTREOTIDE, LONG ACTING [Suspect]
     Active Substance: OCTREOTIDE ACETATE
     Dosage: 20 MG, QMO
     Route: 065
  2. OCTREOTIDE, LONG ACTING [Suspect]
     Active Substance: OCTREOTIDE ACETATE
     Dosage: 30 MG, QMO
     Route: 065
     Dates: start: 2015
  3. OCTREOTIDE, LONG ACTING [Suspect]
     Active Substance: OCTREOTIDE ACETATE
     Dosage: 10 MG, QMO
     Route: 065
     Dates: start: 2011
  4. PEGVISOMANT [Concomitant]
     Active Substance: PEGVISOMANT
     Indication: ACROMEGALY
     Dosage: 15 MG, QD
     Route: 065
     Dates: start: 2016
  5. PEGVISOMANT [Concomitant]
     Active Substance: PEGVISOMANT
     Dosage: 20 MG, QD
     Route: 065
  6. PASIREOTIDE LAR [Suspect]
     Active Substance: PASIREOTIDE
     Dosage: 40 MG, QMO
     Route: 065
     Dates: start: 2019
  7. OCTREOTIDE, LONG ACTING [Suspect]
     Active Substance: OCTREOTIDE ACETATE
     Dosage: 30 MG, QMO
     Route: 065
  8. PASIREOTIDE LAR [Suspect]
     Active Substance: PASIREOTIDE
     Indication: ACROMEGALY
     Dosage: 60 MG, QMO
     Route: 065
     Dates: start: 2018
  9. BROMOCRIPTINE [Concomitant]
     Active Substance: BROMOCRIPTINE
     Indication: PRODUCT USED FOR UNKNOWN INDICATION
     Dosage: UNK
     Route: 065
  10. OCTREOTIDE, LONG ACTING [Suspect]
     Active Substance: OCTREOTIDE ACETATE
     Dosage: 10 MG, QMO
     Route: 065
     Dates: start: 2009
  11. OCTREOTIDE, LONG ACTING [Suspect]
     Active Substance: OCTREOTIDE ACETATE
     Dosage: 20 MG, QMO
     Route: 065
     Dates: start: 2014
  12. PEGVISOMANT [Concomitant]
     Active Substance: PEGVISOMANT
     Dosage: 30 MG, QD
     Route: 065
     Dates: start: 2018
  13. PEGVISOMANT [Concomitant]
     Active Substance: PEGVISOMANT
     Dosage: 15 MG, TID
     Route: 065
     Dates: start: 2019
  14. OCTREOTIDE, LONG ACTING [Suspect]
     Active Substance: OCTREOTIDE ACETATE
     Indication: ACROMEGALY
     Dosage: 10 MG, QMO
     Route: 065
     Dates: start: 2005

REACTIONS (5)
  - Neoplasm progression [Unknown]
  - Type 2 diabetes mellitus [Unknown]
  - Pituitary tumour benign [Unknown]
  - Drug ineffective [Unknown]
  - Therapy non-responder [Unknown]
